FAERS Safety Report 25968858 (Version 1)
Quarter: 2025Q4

REPORT INFORMATION
  Report Type: Spontaneous
  Country: EU (occurrence: EU)
  Receive Date: 20251028
  Receipt Date: 20251028
  Transmission Date: 20260117
  Serious: Yes (Other)
  Sender: ABBVIE
  Company Number: EU-DR. FALK PHARMA GMBH-SA-232-25

PATIENT
  Sex: Female

DRUGS (2)
  1. MESALAMINE [Suspect]
     Active Substance: MESALAMINE
     Indication: Colitis ulcerative
     Dosage: 1 GRAM, QD, IN THE EVENING
     Route: 065
  2. MESALAMINE [Suspect]
     Active Substance: MESALAMINE
     Indication: Product used for unknown indication
     Dosage: 3 GRAM, QD, IN THE MORNING
     Route: 065

REACTIONS (11)
  - Haematochezia [Not Recovered/Not Resolved]
  - Swelling of eyelid [Recovering/Resolving]
  - Mucous stools [Not Recovered/Not Resolved]
  - Headache [Recovering/Resolving]
  - Diarrhoea haemorrhagic [Recovering/Resolving]
  - Erythema of eyelid [Recovering/Resolving]
  - Malaise [Recovering/Resolving]
  - Eyelids pruritus [Recovering/Resolving]
  - Muscle spasms [Recovering/Resolving]
  - Abdominal pain [Not Recovered/Not Resolved]
  - Faeces discoloured [Not Recovered/Not Resolved]
